FAERS Safety Report 8618493-2 (Version None)
Quarter: 2012Q3

REPORT INFORMATION
  Report Type: 
  Country: None (occurrence: None)
  Receive Date: 20120824
  Receipt Date: 20120817
  Transmission Date: 20120928
  Serious: Yes (Other)
  Sender: FDA-Public Use
  Company Number: NL-AMGEN-NLDSP2012053288

PATIENT
  Sex: Female

DRUGS (6)
  1. METHOTREXATE SODIUM [Concomitant]
     Dosage: UNK
  2. OMEPRAZOLE [Concomitant]
     Dosage: UNK
  3. ENBREL [Suspect]
     Indication: RHEUMATOID ARTHRITIS
     Dosage: 50 MG, WEEKLY
     Dates: start: 20120613
  4. FOLIC ACID [Concomitant]
     Dosage: UNK
  5. CALCIUM [Concomitant]
     Dosage: UNK
  6. THYRAX                             /00068001/ [Concomitant]
     Dosage: UNK

REACTIONS (3)
  - INJECTION SITE REACTION [None]
  - DYSPNOEA [None]
  - DEAFNESS TRANSITORY [None]
